FAERS Safety Report 7236021 (Version 3)
Quarter: 2014Q2

REPORT INFORMATION
  Report Type: Spontaneous
  Country: None (occurrence: None)
  Receive Date: 20091215
  Receipt Date: 20140416
  Transmission Date: 20141212
  Serious: Yes (Congenital Anomaly, Other)
  Sender: FDA-Public Use
  Company Number: AUR-APL-2009-01361

PATIENT
  Age: 1 Hour
  Sex: Male
  Weight: 3.37 kg

DRUGS (9)
  1. RETROVIR [Suspect]
     Indication: HIV INFECTION
     Dosage: 600MG 1DAY TRANSPLACENT
     Route: 064
     Dates: start: 20040601, end: 20040720
  2. LAMIVUDINE [Suspect]
     Indication: HIV INFECTION
     Dosage: 1.2GM 1DAY TRANSPLACENT
     Route: 064
     Dates: start: 20040130, end: 20040601
  3. KALETRA [Suspect]
     Indication: HIV INFECTION
     Dosage: 600MG -11X/DAY - TRANSPLACENTAL
     Route: 064
     Dates: start: 20010601
  4. VIRACEPT [Suspect]
     Indication: HIV INFECTION
     Dosage: 2500MG -DAILY -TRANSPLACENTAL
     Route: 064
     Dates: start: 20040130, end: 20040601
  5. VIREAD [Suspect]
     Indication: HIV INFECTION
     Dosage: 300MG - DAILY - TRANSPLACENTAL
     Route: 064
     Dates: start: 20040606, end: 20040910
  6. CRIXIVAN [Suspect]
     Indication: PRODUCT USED FOR UNKNOWN INDICATION
     Dosage: TRANSPLACENTAL?
     Route: 064
     Dates: start: 20040601, end: 20040720
  7. RETROVIR [Suspect]
     Indication: HIV INFECTION
     Dosage: 300MG - TRANSPLACENTAL
     Route: 064
     Dates: start: 20040601, end: 20040720
  8. TRUVADA [Suspect]
     Indication: HIV INFECTION
     Route: 064
     Dates: start: 20040601, end: 20040720
  9. FOLIC ACID (FOLIC ACID) [Concomitant]

REACTIONS (11)
  - Maternal drugs affecting foetus [None]
  - Congenital anomaly [None]
  - Cryptorchism [None]
  - Abdominal distension [None]
  - Neonatal disorder [None]
  - Congenital abdominal hernia [None]
  - Cardiac murmur [None]
  - Exomphalos [None]
  - Gastroschisis [None]
  - Abdominal wall anomaly [None]
  - Muscle disorder [None]
